FAERS Safety Report 9186738 (Version 1)
Quarter: 2012Q4

REPORT INFORMATION
  Report Type: Report from Study
  Country: IL (occurrence: IL)
  Receive Date: 20121102
  Receipt Date: 20121102
  Transmission Date: 20130627
  Serious: Yes (Hospitalization)
  Sender: FDA-Public Use
  Company Number: IL-JNJFOC-20121017060

PATIENT
  Age: 33 None
  Sex: Male

DRUGS (3)
  1. TRAMADOL HYDROCHLORIDE [Suspect]
     Indication: HEPATITIS C
     Route: 065
  2. PEGINTERFERON ALFA [Suspect]
     Indication: HEPATITIS C
     Route: 058
     Dates: start: 20110531
  3. RIBAVIRIN [Suspect]
     Indication: HEPATITIS C
     Route: 048
     Dates: start: 20110331

REACTIONS (3)
  - Aspartate aminotransferase increased [Unknown]
  - Abdominal pain [Recovered/Resolved]
  - Alanine aminotransferase increased [Unknown]
